FAERS Safety Report 21504306 (Version 1)
Quarter: 2022Q4

REPORT INFORMATION
  Report Type: Spontaneous
  Country: US (occurrence: US)
  Receive Date: 20221025
  Receipt Date: 20221025
  Transmission Date: 20230112
  Serious: No
  Sender: FDA-Public Use
  Company Number: US-Albireo AB-2022ALB000063

PATIENT
  Age: 7 Year
  Sex: Female
  Weight: 20.2 kg

DRUGS (4)
  1. BYLVAY [Suspect]
     Active Substance: ODEVIXIBAT
     Indication: Progressive familial intrahepatic cholestasis
     Route: 048
     Dates: start: 20220101
  2. BYLVAY [Suspect]
     Active Substance: ODEVIXIBAT
     Route: 048
     Dates: start: 20220421
  3. URSO [Concomitant]
     Active Substance: URSODIOL
  4. RIFAMPIN [Concomitant]
     Active Substance: RIFAMPIN

REACTIONS (6)
  - Drug ineffective [Not Recovered/Not Resolved]
  - Underdose [Recovered/Resolved]
  - Pruritus [Not Recovered/Not Resolved]
  - Treatment noncompliance [Not Recovered/Not Resolved]
  - Product dose omission issue [Not Recovered/Not Resolved]
  - Drug ineffective [Not Recovered/Not Resolved]

NARRATIVE: CASE EVENT DATE: 20220601
